FAERS Safety Report 6033138-6 (Version None)
Quarter: 2009Q1

REPORT INFORMATION
  Report Type: 
  Country: None (occurrence: None)
  Receive Date: 20090109
  Receipt Date: 20090108
  Transmission Date: 20090719
  Serious: Yes (Death)
  Sender: FDA-Public Use
  Company Number: JP-ASTRAZENECA-2008AP08449

PATIENT
  Age: 66 Year
  Sex: Male
  Weight: 68.2 kg

DRUGS (3)
  1. ZOLADEX [Suspect]
     Indication: PROSTATE CANCER
     Route: 058
     Dates: start: 20080917, end: 20081022
  2. PROSTAL [Suspect]
     Indication: PROSTATE CANCER
     Route: 048
     Dates: start: 20080903, end: 20081015
  3. AMLODIN [Concomitant]
     Indication: HYPERTENSION
     Route: 048

REACTIONS (1)
  - ACUTE HEPATIC FAILURE [None]
